FAERS Safety Report 8844250 (Version 2)
Quarter: 2012Q4

REPORT INFORMATION
  Report Type: Report from Study
  Country: ES (occurrence: ES)
  Receive Date: 20121017
  Receipt Date: 20121029
  Transmission Date: 20130627
  Serious: Yes (Death, Hospitalization)
  Sender: FDA-Public Use
  Company Number: ES-CELGENEUS-144-21880-12091762

PATIENT
  Age: 85 Year
  Sex: Female

DRUGS (22)
  1. REVLIMID [Suspect]
     Indication: MULTIPLE MYELOMA
     Route: 048
     Dates: start: 20120516, end: 20120605
  2. REVLIMID [Suspect]
     Route: 048
     Dates: end: 20120801
  3. ELOTUZUMAB [Suspect]
     Indication: MULTIPLE MYELOMA
     Route: 041
     Dates: start: 20120516, end: 20120605
  4. ELOTUZUMAB [Suspect]
     Route: 041
     Dates: end: 20120710
  5. DEXAMETHASONE [Suspect]
     Indication: MULTIPLE MYELOMA
     Route: 041
     Dates: start: 20120516, end: 20120710
  6. DEXAMETHASONE [Suspect]
     Route: 048
     Dates: start: 20120516, end: 20120717
  7. DEXAMETHASONE [Suspect]
     Route: 048
     Dates: start: 20120710, end: 20120801
  8. FUROSEMIDE [Concomitant]
     Indication: HYPERTENSION
     Route: 065
     Dates: start: 20110118
  9. CANDESARTAN [Concomitant]
     Indication: HYPERTENSION
     Route: 065
     Dates: start: 20110118
  10. PARACETAMOL [Concomitant]
     Indication: DRUG USE FOR UNKNOWN INDICATION
     Route: 065
     Dates: start: 20120328
  11. ACETYLSALICYLIC ACID [Concomitant]
     Indication: DRUG USE FOR UNKNOWN INDICATION
     Route: 065
     Dates: start: 20120328
  12. TRAMADOL [Concomitant]
     Indication: DRUG USE FOR UNKNOWN INDICATION
     Route: 065
     Dates: start: 20120328, end: 20120710
  13. PANTOPRAZOLE [Concomitant]
     Indication: PROPHYLAXIS
     Route: 065
     Dates: start: 20110118
  14. ACETYLCYSTEINE [Concomitant]
     Indication: DRUG USE FOR UNKNOWN INDICATION
     Route: 065
     Dates: start: 20110118
  15. ACENOCOUMAROL [Concomitant]
     Indication: ATRIAL FIBRILLATION
     Route: 065
     Dates: start: 200811
  16. ESCITALOPRAM [Concomitant]
     Indication: DEPRESSION
     Route: 065
     Dates: start: 20110118
  17. MIRTAZAPINE [Concomitant]
     Indication: DEPRESSION
     Route: 065
     Dates: start: 20100128
  18. DILTIAZEM HCL [Concomitant]
     Indication: DRUG USE FOR UNKNOWN INDICATION
     Route: 065
     Dates: start: 20120619
  19. DILTIAZEM HCL [Concomitant]
     Indication: ADVERSE EVENT
     Route: 065
     Dates: start: 20120608, end: 20120608
  20. OXYGEN [Concomitant]
     Indication: DRUG USE FOR UNKNOWN INDICATION
     Route: 065
     Dates: start: 2012, end: 20120811
  21. SEPTRIN FORTE [Concomitant]
     Indication: DRUG USE FOR UNKNOWN INDICATION
     Route: 065
     Dates: start: 20120516, end: 20120619
  22. ALLOPURINOL [Concomitant]
     Indication: DRUG USE FOR UNKNOWN INDICATION
     Route: 065
     Dates: start: 20120516, end: 20120802

REACTIONS (3)
  - Sepsis [Fatal]
  - Urinary tract infection [Unknown]
  - Pneumonia [Recovered/Resolved]
